FAERS Safety Report 14678297 (Version 1)
Quarter: 2018Q1

REPORT INFORMATION
  Report Type: Spontaneous
  Country: US (occurrence: US)
  Receive Date: 20180326
  Receipt Date: 20180326
  Transmission Date: 20180509
  Serious: Yes (Life-Threatening, Other)
  Sender: FDA-Public Use
  Company Number: US-CPL-000319

PATIENT
  Age: 68 Year
  Sex: Female

DRUGS (16)
  1. PALBOCICLIB [Interacting]
     Active Substance: PALBOCICLIB
     Indication: INVASIVE DUCTAL BREAST CARCINOMA
  2. CALCIUM CARBONATE. [Concomitant]
     Active Substance: CALCIUM CARBONATE
  3. PANTOPRAZOLE [Concomitant]
     Active Substance: PANTOPRAZOLE
  4. ROSUVASTATIN/ROSUVASTATIN CALCIUM [Concomitant]
  5. CITALOPRAM [Concomitant]
     Active Substance: CITALOPRAM HYDROBROMIDE
  6. CYANOCOBALAMIN. [Concomitant]
     Active Substance: CYANOCOBALAMIN
  7. LETROZOLE. [Concomitant]
     Active Substance: LETROZOLE
     Indication: INVASIVE DUCTAL BREAST CARCINOMA
  8. COLECALCIFEROL [Concomitant]
     Active Substance: CHOLECALCIFEROL
  9. CICLOSPORIN [Concomitant]
     Active Substance: CYCLOSPORINE
     Dosage: OPHTHALMIC EMULSION
     Route: 047
  10. SALBUTAMOL [Concomitant]
     Active Substance: ALBUTEROL
  11. TIZANIDINE. [Concomitant]
     Active Substance: TIZANIDINE
  12. DICYCLOVERINE [Concomitant]
     Active Substance: DICYCLOMINE HYDROCHLORIDE
  13. NAPROXEN. [Concomitant]
     Active Substance: NAPROXEN
  14. POTASSIUM [Concomitant]
     Active Substance: POTASSIUM
  15. VERAPAMIL [Suspect]
     Active Substance: VERAPAMIL HYDROCHLORIDE
     Indication: HYPERTENSION
  16. CODEINE/PROMETHAZINE [Concomitant]

REACTIONS (8)
  - Stomatitis [Recovered/Resolved]
  - Hypotension [Unknown]
  - Normocytic anaemia [Unknown]
  - Leukopenia [Recovered/Resolved]
  - Drug interaction [Unknown]
  - Periorbital oedema [Recovered/Resolved]
  - Febrile neutropenia [Recovering/Resolving]
  - Transaminases increased [Recovering/Resolving]
